FAERS Safety Report 6841080-3 (Version None)
Quarter: 2010Q3

REPORT INFORMATION
  Report Type: 
  Country: None (occurrence: None)
  Receive Date: 20100714
  Receipt Date: 20070625
  Transmission Date: 20110219
  Serious: No
  Sender: FDA-Public Use
  Company Number: US-PFIZER INC-2007053370

PATIENT
  Sex: Female
  Weight: 69.545 kg

DRUGS (10)
  1. CHANTIX [Suspect]
     Indication: SMOKING CESSATION THERAPY
     Dates: start: 20070601
  2. PREDNISOLONE [Concomitant]
  3. PHENOBARBITAL TAB [Concomitant]
  4. PROZAC [Concomitant]
  5. ESTRATEST [Concomitant]
  6. DETROL [Concomitant]
  7. NEURONTIN [Concomitant]
  8. CALCIUM [Concomitant]
  9. VITAMINS [Concomitant]
  10. RELAFEN [Concomitant]

REACTIONS (2)
  - ORAL DISORDER [None]
  - OROPHARYNGEAL BLISTERING [None]
